FAERS Safety Report 18635395 (Version 1)
Quarter: 2020Q4

REPORT INFORMATION
  Report Type: Spontaneous
  Country: US (occurrence: US)
  Receive Date: 20201218
  Receipt Date: 20201218
  Transmission Date: 20210114
  Serious: No
  Sender: FDA-Public Use
  Company Number: US-THERAPEUTICSMD-2020TMD04174

PATIENT
  Sex: Female

DRUGS (2)
  1. IMVEXXY [Suspect]
     Active Substance: ESTRADIOL
     Dosage: UNK MAINTENANCE PACK, 2X/WEEK
     Dates: start: 202006, end: 202007
  2. IMVEXXY [Suspect]
     Active Substance: ESTRADIOL
     Dosage: UNK, STARTER DOSE
     Dates: start: 2020, end: 202006

REACTIONS (1)
  - Limb operation [Unknown]

NARRATIVE: CASE EVENT DATE: 202007
